FAERS Safety Report 9094409 (Version 1)
Quarter: 2013Q1

REPORT INFORMATION
  Report Type: Spontaneous
  Country: US (occurrence: US)
  Receive Date: 20130219
  Receipt Date: 20130219
  Transmission Date: 20140127
  Serious: No
  Sender: FDA-Public Use
  Company Number: US-009507513-1302USA007543

PATIENT
  Sex: Male

DRUGS (2)
  1. REMERON SOLTAB [Suspect]
     Dosage: 15 MG, UNK
     Route: 048
     Dates: start: 201207
  2. LORAZEPAM [Concomitant]

REACTIONS (1)
  - Weight increased [Unknown]
